FAERS Safety Report 4455658-8 (Version None)
Quarter: 2004Q3

REPORT INFORMATION
  Report Type: 
  Country: None (occurrence: None)
  Receive Date: 20040917
  Receipt Date: 20040902
  Transmission Date: 20050211
  Serious: Yes (Hospitalization, Disabling)
  Sender: FDA-Public Use
  Company Number: 2004GB02168

PATIENT
  Age: 74 Year
  Sex: Female
  Weight: 61.2 kg

DRUGS (5)
  1. ARIMIDEX [Suspect]
     Indication: BREAST CANCER
     Dosage: 1 MG QD PO
     Route: 048
     Dates: start: 19970605, end: 20020711
  2. NOLVADEX [Suspect]
     Indication: BREAST CANCER
     Dosage: 20 MG QD PO
     Route: 048
     Dates: start: 19970605, end: 20020711
  3. BENDROFLUAZIDE [Concomitant]
  4. GARLIC CAPSULES [Concomitant]
  5. CALCICHEW [Concomitant]

REACTIONS (4)
  - FEMORAL NECK FRACTURE [None]
  - OSTEOPOROSIS [None]
  - ROAD TRAFFIC ACCIDENT [None]
  - ULNA FRACTURE [None]
